FAERS Safety Report 8272151-5 (Version None)
Quarter: 2012Q2

REPORT INFORMATION
  Report Type: 
  Country: None (occurrence: None)
  Receive Date: 20120410
  Receipt Date: 20120210
  Transmission Date: 20120825
  Serious: No
  Sender: FDA-Public Use
  Company Number: US-ASTRAZENECA-2012SE00124

PATIENT
  Age: 65 Year
  Sex: Female

DRUGS (5)
  1. THYROID TAB [Concomitant]
  2. LOPRAMIDE A-D [Concomitant]
  3. GLEEVEC [Concomitant]
  4. VANDETANIB [Suspect]
     Indication: THYROID CANCER
     Route: 048
  5. LORTAB [Concomitant]

REACTIONS (6)
  - JOINT SWELLING [None]
  - ORAL PAIN [None]
  - MYALGIA [None]
  - DIARRHOEA [None]
  - FATIGUE [None]
  - MUSCLE SPASMS [None]
